FAERS Safety Report 21468822 (Version 2)
Quarter: 2022Q4

REPORT INFORMATION
  Report Type: Spontaneous
  Country: JP (occurrence: None)
  Receive Date: 20221018
  Receipt Date: 20221025
  Transmission Date: 20230113
  Serious: Yes (Death, Hospitalization, Other)
  Sender: FDA-Public Use
  Company Number: JP-VistaPharm, Inc.-VER202210-000828

PATIENT
  Age: 6 Year
  Sex: Male

DRUGS (2)
  1. ACETAMINOPHEN\HYDROCODONE [Suspect]
     Active Substance: ACETAMINOPHEN\HYDROCODONE
     Indication: Mycoplasma infection
     Dosage: UNKNOWN
     Route: 065
  2. CLARITHROMYCIN [Concomitant]
     Active Substance: CLARITHROMYCIN
     Indication: Mycoplasma infection
     Dosage: UNKNOWN
     Route: 065

REACTIONS (4)
  - Diffuse alveolar damage [Fatal]
  - Respiratory failure [Unknown]
  - Traumatic haemothorax [Unknown]
  - Stevens-Johnson syndrome [Unknown]
